FAERS Safety Report 16123325 (Version 2)
Quarter: 2019Q2

REPORT INFORMATION
  Report Type: Report from Study
  Country: None (occurrence: US)
  Receive Date: 20190327
  Receipt Date: 20190424
  Transmission Date: 20190711
  Serious: Yes (Other)
  Sender: FDA-Public Use
  Company Number: US-ABBVIE-18K-163-2576284-00

PATIENT
  Age: 62 Year
  Sex: Female
  Weight: 71.73 kg

DRUGS (9)
  1. IMURAN [Suspect]
     Active Substance: AZATHIOPRINE
     Indication: CROHN^S DISEASE
     Route: 048
     Dates: start: 201711, end: 2018
  2. ZOLOFT [Concomitant]
     Active Substance: SERTRALINE HYDROCHLORIDE
     Indication: ANXIETY
  3. IMURAN [Suspect]
     Active Substance: AZATHIOPRINE
     Route: 048
     Dates: start: 2018, end: 2018
  4. IMURAN [Suspect]
     Active Substance: AZATHIOPRINE
     Route: 048
     Dates: start: 2018, end: 201808
  5. RESTORIL [Concomitant]
     Active Substance: TEMAZEPAM
     Indication: SLEEP DISORDER THERAPY
  6. HUMIRA [Suspect]
     Active Substance: ADALIMUMAB
     Indication: CROHN^S DISEASE
     Route: 058
     Dates: start: 201703
  7. ASPIRIN. [Concomitant]
     Active Substance: ASPIRIN
     Indication: THROMBOSIS PROPHYLAXIS
  8. ZOLOFT [Concomitant]
     Active Substance: SERTRALINE HYDROCHLORIDE
     Indication: DEPRESSION
  9. VITAMIN B12 [Concomitant]
     Active Substance: CYANOCOBALAMIN
     Indication: VITAMIN B12 DEFICIENCY

REACTIONS (5)
  - Abdominal distension [Unknown]
  - Squamous cell carcinoma of skin [Recovered/Resolved]
  - Drug ineffective [Unknown]
  - Gastrointestinal obstruction [Recovering/Resolving]
  - Crohn^s disease [Recovering/Resolving]

NARRATIVE: CASE EVENT DATE: 201805
